FAERS Safety Report 7932256-2 (Version None)
Quarter: 2011Q4

REPORT INFORMATION
  Report Type: 
  Country: None (occurrence: None)
  Receive Date: 20111121
  Receipt Date: 20110405
  Transmission Date: 20120403
  Serious: Yes (Other)
  Sender: FDA-Public Use
  Company Number: US-AMGEN-USASP2011021167

PATIENT
  Age: 75 Year
  Sex: Male

DRUGS (3)
  1. BENADRYL [Concomitant]
  2. ATIVAN [Concomitant]
  3. VECTIBIX [Suspect]
     Indication: COLORECTAL CANCER
     Dates: start: 20110101

REACTIONS (2)
  - CHILLS [None]
  - DYSPNOEA [None]
